FAERS Safety Report 13102126 (Version 6)
Quarter: 2018Q4

REPORT INFORMATION
  Report Type: Report from Study
  Country: AT (occurrence: AT)
  Receive Date: 20170110
  Receipt Date: 20181119
  Transmission Date: 20190204
  Serious: Yes (Hospitalization, Other)
  Sender: FDA-Public Use
  Company Number: AT-CELGENEUS-AUT-2016106375

PATIENT
  Age: 65 Year
  Sex: Male
  Weight: 56 kg

DRUGS (36)
  1. ABRAXANE [Suspect]
     Active Substance: PACLITAXEL
     Dosage: 536 MILLIGRAM/SQ. METER
     Route: 041
     Dates: start: 20161012
  2. ABRAXANE [Suspect]
     Active Substance: PACLITAXEL
     Dosage: 162 MG
     Route: 041
     Dates: start: 20161215
  3. ABRAXANE [Suspect]
     Active Substance: PACLITAXEL
     Dosage: 526 MILLIGRAM/SQ. METER
     Route: 041
     Dates: start: 20161012
  4. ABRAXANE [Suspect]
     Active Substance: PACLITAXEL
     Dosage: 842 MG/M2
     Route: 041
     Dates: start: 201610
  5. GEMCITABINE [Suspect]
     Active Substance: GEMCITABINE\GEMCITABINE HYDROCHLORIDE
     Dosage: 1691 MILLIGRAM/SQ. METER
     Route: 065
     Dates: start: 201609
  6. GEMCITABINE [Suspect]
     Active Substance: GEMCITABINE\GEMCITABINE HYDROCHLORIDE
     Dosage: 842 MILLIGRAM/SQ. METER
     Route: 065
     Dates: start: 201609
  7. GEMCITABINE [Suspect]
     Active Substance: GEMCITABINE\GEMCITABINE HYDROCHLORIDE
     Dosage: 1295 MILLIGRAM/SQ. METER
     Route: 065
     Dates: start: 201611
  8. GEMCITABINE [Suspect]
     Active Substance: GEMCITABINE\GEMCITABINE HYDROCHLORIDE
     Dosage: 3390 MILLIGRAM/SQ. METER
     Route: 065
     Dates: start: 201701
  9. ABRAXANE [Suspect]
     Active Substance: PACLITAXEL
     Dosage: 104  MG/M2
     Route: 041
     Dates: start: 201609
  10. ABRAXANE [Suspect]
     Active Substance: PACLITAXEL
     Dosage: 119 MG/M2
     Route: 041
     Dates: start: 20170112
  11. GEMCITABINE [Suspect]
     Active Substance: GEMCITABINE\GEMCITABINE HYDROCHLORIDE
     Dosage: 7861 MILLIGRAM/SQ. METER
     Route: 065
     Dates: start: 201610
  12. GEMCITABINE [Suspect]
     Active Substance: GEMCITABINE\GEMCITABINE HYDROCHLORIDE
     Dosage: 5424 MILLIGRAM/SQ. METER
     Route: 065
     Dates: start: 201701, end: 20170210
  13. ABRAXANE [Suspect]
     Active Substance: PACLITAXEL
     Dosage: 162 MG/M2
     Route: 041
     Dates: start: 20161117
  14. GEMCITABINE [Suspect]
     Active Substance: GEMCITABINE\GEMCITABINE HYDROCHLORIDE
     Dosage: 4306 MILLIGRAM/SQ. METER
     Route: 065
     Dates: start: 201609
  15. GEMCITABINE [Suspect]
     Active Substance: GEMCITABINE\GEMCITABINE HYDROCHLORIDE
     Dosage: 1642 MILLIGRAM/SQ. METER
     Route: 065
     Dates: start: 201610
  16. ABRAXANE [Suspect]
     Active Substance: PACLITAXEL
     Dosage: 161  MG/M2
     Route: 041
     Dates: start: 201611
  17. GEMCITABINE [Suspect]
     Active Substance: GEMCITABINE\GEMCITABINE HYDROCHLORIDE
     Dosage: 1289 MILLIGRAM/SQ. METER
     Route: 065
     Dates: start: 20161117
  18. GEMCITABINE [Suspect]
     Active Substance: GEMCITABINE\GEMCITABINE HYDROCHLORIDE
     Dosage: 3888 MILLIGRAM/SQ. METER
     Route: 065
     Dates: start: 201611
  19. GEMCITABINE [Suspect]
     Active Substance: GEMCITABINE\GEMCITABINE HYDROCHLORIDE
     Dosage: 1218 MILLIGRAM/SQ. METER
     Route: 065
     Dates: start: 20170112
  20. GEMCITABINE [Suspect]
     Active Substance: GEMCITABINE\GEMCITABINE HYDROCHLORIDE
     Dosage: 4913 MILLIGRAM/SQ. METER
     Route: 065
     Dates: start: 20161012
  21. GEMCITABINE [Suspect]
     Active Substance: GEMCITABINE\GEMCITABINE HYDROCHLORIDE
     Dosage: 1635 MILLIGRAM/SQ. METER
     Route: 065
     Dates: start: 201610
  22. ABRAXANE [Suspect]
     Active Substance: PACLITAXEL
     Indication: PANCREATIC CARCINOMA
     Dosage: 315 MILLIGRAM/SQ. METER
     Route: 041
     Dates: start: 20160921
  23. ABRAXANE [Suspect]
     Active Substance: PACLITAXEL
     Dosage: 200  MG/M2
     Route: 041
     Dates: start: 201610
  24. ABRAXANE [Suspect]
     Active Substance: PACLITAXEL
     Dosage: 485  MG/M2
     Route: 041
     Dates: start: 201611
  25. NEXIUM [Concomitant]
     Active Substance: ESOMEPRAZOLE MAGNESIUM
     Indication: PRODUCT USED FOR UNKNOWN INDICATION
     Dosage: 80 MILLIGRAM
     Route: 065
  26. ABRAXANE [Suspect]
     Active Substance: PACLITAXEL
     Dosage: 163  MG/M2
     Route: 041
     Dates: start: 201610
  27. ABRAXANE [Suspect]
     Active Substance: PACLITAXEL
     Dosage: 190 MG/M2
     Route: 041
     Dates: start: 201701, end: 20170210
  28. GEMCITABINE [Suspect]
     Active Substance: GEMCITABINE\GEMCITABINE HYDROCHLORIDE
     Dosage: 6221 MILLIGRAM/SQ. METER
     Route: 065
     Dates: start: 201611
  29. GEMCITABINE [Suspect]
     Active Substance: GEMCITABINE\GEMCITABINE HYDROCHLORIDE
     Dosage: 963 MILLIGRAM/SQ. METER
     Route: 065
     Dates: start: 201611
  30. GEMCITABINE [Suspect]
     Active Substance: GEMCITABINE\GEMCITABINE HYDROCHLORIDE
     Dosage: 1209 MILLIGRAM/SQ. METER
     Route: 065
     Dates: start: 201701
  31. ABRAXANE [Suspect]
     Active Substance: PACLITAXEL
     Dosage: 211 MG/M2
     Route: 041
     Dates: start: 201609
  32. ABRAXANE [Suspect]
     Active Substance: PACLITAXEL
     Dosage: 776 MG/M2
     Route: 041
     Dates: start: 201611
  33. GEMCITABINE [Suspect]
     Active Substance: GEMCITABINE\GEMCITABINE HYDROCHLORIDE
     Indication: PANCREATIC CARCINOMA
     Dosage: 2533 MILLIGRAM/SQ. METER
     Route: 065
     Dates: start: 20160921
  34. GEMCITABINE [Suspect]
     Active Substance: GEMCITABINE\GEMCITABINE HYDROCHLORIDE
     Dosage: 1304.29 MG
     Route: 065
     Dates: start: 20161215
  35. GEMCITABINE [Suspect]
     Active Substance: GEMCITABINE\GEMCITABINE HYDROCHLORIDE
     Dosage: 1636 MILLIGRAM/SQ. METER
     Route: 065
     Dates: start: 201610
  36. KGDAL [Concomitant]
     Indication: PRODUCT USED FOR UNKNOWN INDICATION
     Dosage: 4 MILLIGRAM
     Route: 065

REACTIONS (10)
  - Neutropenia [Recovered/Resolved]
  - Leukopenia [Recovered/Resolved]
  - Leukopenia [Unknown]
  - Leukopenia [Recovered/Resolved]
  - Anaemia [Recovered/Resolved]
  - Anastomotic ulcer [Recovered/Resolved]
  - Neutropenia [Recovered/Resolved]
  - Neutropenia [Recovered/Resolved]
  - Leukopenia [Recovered/Resolved]
  - Leukopenia [Recovered/Resolved]

NARRATIVE: CASE EVENT DATE: 20160928
